FAERS Safety Report 17093995 (Version 1)
Quarter: 2019Q4

REPORT INFORMATION
  Report Type: Spontaneous
  Country: US (occurrence: US)
  Receive Date: 20191129
  Receipt Date: 20191129
  Transmission Date: 20200122
  Serious: No
  Sender: FDA-Public Use
  Company Number: US-EMD SERONO-238852K07USA

PATIENT
  Sex: Female

DRUGS (1)
  1. REBIF [Suspect]
     Active Substance: INTERFERON BETA-1A
     Indication: MULTIPLE SCLEROSIS
     Route: 058
     Dates: start: 20070824

REACTIONS (11)
  - Chills [Unknown]
  - Dizziness [Unknown]
  - Sleep disorder [Unknown]
  - Muscle tightness [Not Recovered/Not Resolved]
  - Wrong technique in product usage process [Unknown]
  - Injection site discolouration [Unknown]
  - Hypertension [Recovering/Resolving]
  - Multiple sclerosis relapse [Recovering/Resolving]
  - Fatigue [Unknown]
  - Injection site erythema [Unknown]
  - Chest discomfort [Not Recovered/Not Resolved]

NARRATIVE: CASE EVENT DATE: 2007
